FAERS Safety Report 17169928 (Version 3)
Quarter: 2020Q1

REPORT INFORMATION
  Report Type: Spontaneous
  Country: JP (occurrence: JP)
  Receive Date: 20191218
  Receipt Date: 20200217
  Transmission Date: 20200409
  Serious: Yes (Death, Other)
  Sender: FDA-Public Use
  Company Number: JP-BAYER-2019-230127

PATIENT
  Age: 65 Year
  Sex: Male
  Weight: 68.2 kg

DRUGS (9)
  1. METHYLPREDNISOLONE NA SUCCINATE [Concomitant]
     Active Substance: METHYLPREDNISOLONE SODIUM SUCCINATE
     Dosage: DAILY DOSE 1000 MG
     Route: 042
     Dates: start: 20161027, end: 20161028
  2. HALOPERIDOL. [Concomitant]
     Active Substance: HALOPERIDOL
     Dosage: DAILY DOSE 10 MG
     Route: 042
     Dates: start: 20161028, end: 20161029
  3. OXYGEN. [Concomitant]
     Active Substance: OXYGEN
     Indication: DYSPNOEA
  4. MORPHINE HYDROCHLORIDE [Concomitant]
     Active Substance: MORPHINE HYDROCHLORIDE
     Dosage: DAILY DOSE 5 MG
     Route: 048
     Dates: start: 20160701, end: 20161028
  5. MORPHINE HYDROCHLORIDE [Concomitant]
     Active Substance: MORPHINE HYDROCHLORIDE
     Dosage: DAILY DOSE 50 MG
     Route: 042
     Dates: start: 20161028, end: 20161029
  6. STIVARGA [Suspect]
     Active Substance: REGORAFENIB
     Indication: RECTAL CANCER
     Dosage: 3 WEEKS ON 1 WEEK OFF,120MG DAILY, ADMINISTRATION FOR 21 DAYS
     Route: 048
     Dates: start: 20160701, end: 20161011
  7. ACETAMINOPHEN. [Concomitant]
     Active Substance: ACETAMINOPHEN
     Dosage: DAILY DOSE 3300 MG
     Route: 048
     Dates: start: 20160720, end: 20161028
  8. STIVARGA [Suspect]
     Active Substance: REGORAFENIB
     Indication: LYMPHANGIOSIS CARCINOMATOSA
  9. CEFTRIAXONE NA [Concomitant]
     Active Substance: CEFTRIAXONE
     Dosage: DAILY DOSE 1 G
     Route: 042
     Dates: start: 20161018, end: 20161023

REACTIONS (5)
  - Hypoalbuminaemia [None]
  - Renal impairment [None]
  - Hypertension [Not Recovered/Not Resolved]
  - Proteinuria [Not Recovered/Not Resolved]
  - Pneumonia [None]

NARRATIVE: CASE EVENT DATE: 2016
